FAERS Safety Report 9490125 (Version 3)
Quarter: 2016Q1

REPORT INFORMATION
  Report Type: Report from Study
  Country: GB (occurrence: GB)
  Receive Date: 20130830
  Receipt Date: 20160112
  Transmission Date: 20160526
  Serious: Yes (Hospitalization, Other)
  Sender: FDA-Public Use
  Company Number: GB-PFIZER INC-2013248324

PATIENT
  Age: 75 Year
  Sex: Male

DRUGS (20)
  1. ALLOPURINOL. [Concomitant]
     Active Substance: ALLOPURINOL
     Indication: PROPHYLAXIS
     Dosage: UNK
     Dates: end: 201408
  2. VINCRISTINE [Suspect]
     Active Substance: VINCRISTINE
     Indication: DIFFUSE LARGE B-CELL LYMPHOMA
     Dosage: 2 MG, EVERY 3 WEEKS (1 IN 3 WK)
     Route: 042
     Dates: start: 20130625
  3. PREDNISONE. [Suspect]
     Active Substance: PREDNISONE
     Indication: DIFFUSE LARGE B-CELL LYMPHOMA
     Dosage: 100 MG, EVERY 3 WEEKS (1 IN 3 WK)
     Route: 048
     Dates: start: 20130625
  4. PREDNISONE. [Suspect]
     Active Substance: PREDNISONE
     Dosage: 2 MG, EVERY 3 WEEKS (1 IN 3 WK)
     Route: 042
     Dates: start: 20130625
  5. PARACETAMOL [Concomitant]
     Active Substance: ACETAMINOPHEN
     Dosage: UNK, AS NEEDED
  6. COLECALCIFEROL [Concomitant]
     Active Substance: CHOLECALCIFEROL
  7. DOXORUBICIN [Suspect]
     Active Substance: DOXORUBICIN
     Dosage: 2 MG, EVERY 3 WEEKS (1 IN 3 WK)
     Route: 042
     Dates: start: 20130625
  8. BENZYDAMINE HCL [Concomitant]
     Indication: FUNGAL INFECTION
     Dosage: UNK
     Dates: start: 20130708
  9. RITUXIMAB [Suspect]
     Active Substance: RITUXIMAB
     Indication: DIFFUSE LARGE B-CELL LYMPHOMA
     Dosage: 1.23 MG/ML VOL 570 ML (1 IN 3 WK)
     Route: 042
     Dates: start: 20130625
  10. SANDO K [Concomitant]
     Indication: HYPOKALAEMIA
     Dosage: UNK
     Dates: start: 20130710, end: 201408
  11. CHLORHEXIDINE [Concomitant]
     Active Substance: CHLORHEXIDINE
     Indication: FUNGAL INFECTION
     Dosage: UNK
     Dates: start: 20130708
  12. CHLORPHENAMINE [Concomitant]
     Active Substance: CHLORPHENIRAMINE MALEATE
     Indication: PROPHYLAXIS
     Dosage: UNK
     Dates: start: 20130625, end: 20130807
  13. CYCLOPHOSPHAMIDE. [Suspect]
     Active Substance: CYCLOPHOSPHAMIDE
     Indication: DIFFUSE LARGE B-CELL LYMPHOMA
     Dosage: 1300 MG, EVERY 3 WEEKS (1 IN 3 WK)
     Route: 042
     Dates: start: 20130625
  14. LEVOTHYROXINE. [Concomitant]
     Active Substance: LEVOTHYROXINE
     Indication: HYPOTHYROIDISM
     Dosage: UNK
     Dates: start: 1979
  15. ZOPICLONE [Concomitant]
     Active Substance: ZOPICLONE
     Indication: INSOMNIA
     Dosage: UNK
     Dates: end: 20130710
  16. ADCAL [Concomitant]
     Indication: PROPHYLAXIS
     Dosage: UNK
     Dates: start: 2011, end: 201408
  17. DOXORUBICIN [Suspect]
     Active Substance: DOXORUBICIN
     Indication: DIFFUSE LARGE B-CELL LYMPHOMA
     Dosage: 90 MG, EVERY 3 WEEKS (1 IN 3 WEEK)
     Route: 042
     Dates: start: 20130625
  18. VINCRISTINE [Suspect]
     Active Substance: VINCRISTINE
     Dosage: 2 MG, EVERY 3 WEEKS (1 IN 3 WK)
     Route: 042
     Dates: start: 20130625
  19. ACICLOVIR [Concomitant]
     Active Substance: ACYCLOVIR
     Indication: PROPHYLAXIS
     Dosage: UNK
     Dates: start: 20130621, end: 201403
  20. OMEPRAZOLE. [Concomitant]
     Active Substance: OMEPRAZOLE
     Indication: PROPHYLAXIS
     Dosage: UNK
     Dates: start: 20130625, end: 201409

REACTIONS (2)
  - Neutropenic sepsis [Not Recovered/Not Resolved]
  - Neutropenic sepsis [Recovered/Resolved]

NARRATIVE: CASE EVENT DATE: 20130706
